FAERS Safety Report 5143920-5 (Version None)
Quarter: 2006Q4

REPORT INFORMATION
  Report Type: 
  Country: None (occurrence: None)
  Receive Date: 20061106
  Receipt Date: 20061027
  Transmission Date: 20070319
  Serious: Yes (Hospitalization)
  Sender: FDA-Public Use
  Company Number: 2006UW20708

PATIENT
  Sex: Female

DRUGS (1)
  1. SEROQUEL [Suspect]
     Indication: BIPOLAR DISORDER
     Route: 048
     Dates: start: 20020101

REACTIONS (6)
  - ABASIA [None]
  - DEPRESSION [None]
  - DYSPHONIA [None]
  - MULTIPLE SCLEROSIS [None]
  - SUICIDAL IDEATION [None]
  - TREMOR [None]
